FAERS Safety Report 15010481 (Version 1)
Quarter: 2018Q2

REPORT INFORMATION
  Report Type: Spontaneous
  Country: US (occurrence: US)
  Receive Date: 20180528
  Receipt Date: 20180528
  Transmission Date: 20180711
  Serious: Yes (Disabling)
  Sender: FDA-Public Use
  Company Number: None

PATIENT
  Age: 44 Year
  Sex: Male
  Weight: 68.4 kg

DRUGS (2)
  1. TOPICAL CORTICOSTEROID [Concomitant]
  2. DUPIXENT [Suspect]
     Active Substance: DUPILUMAB
     Dosage: ?          QUANTITY:1 DF DOSAGE FORM;OTHER FREQUENCY:1 INJECTION 2 WEEK;?
     Route: 030
     Dates: start: 20170614, end: 20180528

REACTIONS (2)
  - Ear discomfort [None]
  - Hypersensitivity [None]

NARRATIVE: CASE EVENT DATE: 20180528
